FAERS Safety Report 13071555 (Version 1)
Quarter: 2016Q4

REPORT INFORMATION
  Report Type: Spontaneous
  Country: US (occurrence: US)
  Receive Date: 20161228
  Receipt Date: 20161228
  Transmission Date: 20170207
  Serious: Yes (Hospitalization)
  Sender: FDA-Public Use
  Company Number: None

PATIENT
  Age: 26 Year
  Sex: Female
  Weight: 61.4 kg

DRUGS (1)
  1. TUBERCULIN, PURIFIED PROTEIN DERIVATIVE [Suspect]
     Active Substance: TUBERCULIN PURIFIED PROTEIN DERIVATIVE
     Indication: TUBERCULIN TEST

REACTIONS (14)
  - Fall [None]
  - Tremor [None]
  - Blood glucose decreased [None]
  - Head injury [None]
  - Presyncope [None]
  - Hypoaesthesia [None]
  - Respiratory distress [None]
  - Pain [None]
  - Anxiety [None]
  - Dizziness [None]
  - Muscle rigidity [None]
  - Tachypnoea [None]
  - Fear of injection [None]
  - Crying [None]

NARRATIVE: CASE EVENT DATE: 20161101
